FAERS Safety Report 13472577 (Version 2)
Quarter: 2017Q2

REPORT INFORMATION
  Report Type: Spontaneous
  Country: FR (occurrence: FR)
  Receive Date: 20170424
  Receipt Date: 20170504
  Transmission Date: 20170830
  Serious: Yes (Hospitalization)
  Sender: FDA-Public Use
  Company Number: FR-PACIRA PHARMACEUTICALS, INC.-2017DEPFR00718

PATIENT
  Age: 66 Year
  Sex: Male

DRUGS (20)
  1. PRIMPERAN [Suspect]
     Active Substance: METOCLOPRAMIDE HYDROCHLORIDE
     Indication: PROPHYLAXIS OF NAUSEA AND VOMITING
  2. ENDOXAN [Suspect]
     Active Substance: CYCLOPHOSPHAMIDE
     Indication: PLASMA CELL MYELOMA
     Route: 042
     Dates: start: 20170314, end: 20170316
  3. ROCEPHINE [Suspect]
     Active Substance: CEFTRIAXONE SODIUM
     Indication: ENTEROCOLITIS HAEMORRHAGIC
     Dosage: 1 G, QD
     Route: 042
     Dates: start: 20170321, end: 20170401
  4. ATOVAQUONE. [Concomitant]
     Active Substance: ATOVAQUONE
  5. ACUPAN [Suspect]
     Active Substance: NEFOPAM HYDROCHLORIDE
     Indication: PAIN
  6. CISPLATIN. [Suspect]
     Active Substance: CISPLATIN
     Indication: PLASMA CELL MYELOMA
     Route: 042
     Dates: start: 20170314, end: 20170316
  7. ESOMEPRAZOLE [Concomitant]
     Active Substance: ESOMEPRAZOLE
  8. TRAMADOL. [Suspect]
     Active Substance: TRAMADOL
     Indication: PAIN
  9. ZOPHREN [Suspect]
     Active Substance: ONDANSETRON
     Indication: PROPHYLAXIS OF NAUSEA AND VOMITING
  10. ETOPOSIDE MYLAN [Suspect]
     Active Substance: ETOPOSIDE
     Indication: PLASMA CELL MYELOMA
     Dosage: 66 MG, DAILY
     Route: 042
     Dates: start: 20170314, end: 20170316
  11. FLAGYL [Suspect]
     Active Substance: METRONIDAZOLE\METRONIDAZOLE HYDROCHLORIDE
     Indication: ENTEROCOLITIS HAEMORRHAGIC
     Dosage: UNK
     Route: 042
     Dates: start: 20170321, end: 20170329
  12. DEPOCYT [Suspect]
     Active Substance: CYTARABINE
     Indication: PLASMA CELL MYELOMA
     Route: 037
     Dates: start: 20170314, end: 20170317
  13. DEXAMETHASONE. [Suspect]
     Active Substance: DEXAMETHASONE
     Indication: PROPHYLAXIS OF NAUSEA AND VOMITING
     Dosage: 40 MG, DAILY
     Route: 048
     Dates: start: 20170314, end: 20170316
  14. NEORECORMON [Concomitant]
     Active Substance: ERYTHROPOIETIN
  15. ZELITREX [Suspect]
     Active Substance: VALACYCLOVIR HYDROCHLORIDE
     Indication: OPPORTUNISTIC INFECTION PROPHYLAXIS
  16. ORACILLINE [Suspect]
     Active Substance: PENICILLIN V
     Indication: PROPHYLAXIS
     Route: 048
     Dates: start: 20170317
  17. LOVENOX [Suspect]
     Active Substance: ENOXAPARIN SODIUM
     Indication: THROMBOSIS PROPHYLAXIS
     Dosage: UNK UNK, UNK
     Route: 058
  18. GRANOCYTE [Concomitant]
     Active Substance: LENOGRASTIM
  19. AMLODIPINE [Concomitant]
     Active Substance: AMLODIPINE BESYLATE
  20. ALPRAZOLAM. [Concomitant]
     Active Substance: ALPRAZOLAM

REACTIONS (6)
  - Rectal haemorrhage [Recovered/Resolved]
  - Seizure [Recovered/Resolved]
  - Off label use [Unknown]
  - Confusional state [Recovered/Resolved]
  - Colitis [Recovered/Resolved]
  - Pyrexia [Recovered/Resolved]

NARRATIVE: CASE EVENT DATE: 20170318
